FAERS Safety Report 20037874 (Version 2)
Quarter: 2022Q3

REPORT INFORMATION
  Report Type: Report from Study
  Country: ZA (occurrence: ZA)
  Receive Date: 20211105
  Receipt Date: 20220810
  Transmission Date: 20221027
  Serious: Yes (Hospitalization)
  Sender: FDA-Public Use
  Company Number: ZA-NOVOPROD-862652

PATIENT
  Age: 67 Year
  Sex: Female

DRUGS (2)
  1. INDAPAMIDE [Concomitant]
     Active Substance: INDAPAMIDE
  2. ESTRADIOL HEMIHYDRATE [Suspect]
     Active Substance: ESTRADIOL HEMIHYDRATE
     Indication: Hormone replacement therapy
     Dosage: 2 MG
     Route: 048

REACTIONS (1)
  - Hospitalisation [Unknown]
